FAERS Safety Report 19203965 (Version 1)
Quarter: 2021Q2

REPORT INFORMATION
  Report Type: Report from Study
  Country: US (occurrence: US)
  Receive Date: 20210503
  Receipt Date: 20210503
  Transmission Date: 20210717
  Serious: Yes (Death, Other)
  Sender: FDA-Public Use
  Company Number: US-ACADIA PHARMACEUTICALS INC.-ACA-2021-PIM-001564

PATIENT
  Age: 80 Year
  Sex: Male

DRUGS (12)
  1. CLONIDINE. [Concomitant]
     Active Substance: CLONIDINE
  2. ELIDEL [Concomitant]
     Active Substance: PIMECROLIMUS
  3. NUPLAZID [Suspect]
     Active Substance: PIMAVANSERIN TARTRATE
     Indication: PARKINSON^S DISEASE
     Dosage: 34 MILLIGRAM, QD
     Route: 048
     Dates: start: 20200313
  4. TAMSULOSIN [Concomitant]
     Active Substance: TAMSULOSIN
  5. DONEPEZIL. [Concomitant]
     Active Substance: DONEPEZIL
  6. METHIMAZOLE. [Concomitant]
     Active Substance: METHIMAZOLE
  7. FINASTERIDE. [Concomitant]
     Active Substance: FINASTERIDE
  8. METOPROLOL. [Concomitant]
     Active Substance: METOPROLOL
  9. FENOFIBRATE. [Concomitant]
     Active Substance: FENOFIBRATE
  10. NUPLAZID [Suspect]
     Active Substance: PIMAVANSERIN TARTRATE
     Dosage: 34 MILLIGRAM, QD
     Route: 048
     Dates: start: 20210224, end: 202104
  11. ADVAIR HFA [Concomitant]
     Active Substance: FLUTICASONE PROPIONATE\SALMETEROL XINAFOATE
  12. LOSARTAN POTASSIUM. [Concomitant]
     Active Substance: LOSARTAN POTASSIUM

REACTIONS (1)
  - Death [Fatal]

NARRATIVE: CASE EVENT DATE: 20210412
